FAERS Safety Report 6632414-3 (Version None)
Quarter: 2010Q1

REPORT INFORMATION
  Report Type: 
  Country: None (occurrence: None)
  Receive Date: 20100312
  Receipt Date: 20090911
  Transmission Date: 20100710
  Serious: Yes (Hospitalization)
  Sender: FDA-Public Use
  Company Number: 2007BI005605

PATIENT
  Age: 38 Year
  Sex: Female
  Weight: 61 kg

DRUGS (4)
  1. AVONEX [Suspect]
     Indication: MULTIPLE SCLEROSIS
     Route: 030
     Dates: start: 20020329, end: 20030101
  2. AVONEX [Suspect]
     Route: 030
     Dates: start: 20030101
  3. IUD [Concomitant]
     Dates: start: 20020101, end: 20050101
  4. ORTHO TRI-CYCLEN [Concomitant]
     Route: 048
     Dates: start: 20050101

REACTIONS (2)
  - LYME DISEASE [None]
  - MULTIPLE SCLEROSIS RELAPSE [None]
